FAERS Safety Report 25566055 (Version 2)
Quarter: 2025Q3

REPORT INFORMATION
  Report Type: Spontaneous
  Country: US (occurrence: US)
  Receive Date: 20250716
  Receipt Date: 20250716
  Transmission Date: 20251020
  Serious: No
  Sender: NOVO NORDISK
  Company Number: US-NOVOPROD-1302461

PATIENT
  Age: 91 Year
  Sex: Female

DRUGS (3)
  1. OZEMPIC [Suspect]
     Active Substance: SEMAGLUTIDE
     Indication: Weight control
     Route: 058
  2. OZEMPIC [Suspect]
     Active Substance: SEMAGLUTIDE
     Route: 058
     Dates: start: 20240719
  3. OZEMPIC [Suspect]
     Active Substance: SEMAGLUTIDE
     Indication: Weight control
     Route: 058

REACTIONS (16)
  - Cough [Unknown]
  - Rhinorrhoea [Unknown]
  - Tremor [Unknown]
  - Upper-airway cough syndrome [Unknown]
  - Injection site discolouration [Unknown]
  - Injection site bruising [Unknown]
  - Nausea [Not Recovered/Not Resolved]
  - Glycosylated haemoglobin increased [Unknown]
  - Injury associated with device [Unknown]
  - Needle issue [Unknown]
  - Wrong technique in product usage process [Not Recovered/Not Resolved]
  - Inappropriate schedule of product administration [Unknown]
  - Wrong technique in product usage process [Unknown]
  - Off label use [Unknown]
  - Wrong technique in product usage process [Unknown]
  - Device difficult to use [Unknown]
